FAERS Safety Report 13925728 (Version 1)
Quarter: 2017Q3

REPORT INFORMATION
  Report Type: Spontaneous
  Country: BR (occurrence: BR)
  Receive Date: 20170831
  Receipt Date: 20170831
  Transmission Date: 20171127
  Serious: Yes (Other)
  Sender: FDA-Public Use
  Company Number: BR-PFIZER INC-2017302361

PATIENT
  Age: 65 Year
  Sex: Male
  Weight: 74 kg

DRUGS (9)
  1. CIPRO [Concomitant]
     Active Substance: CIPROFLOXACIN HYDROCHLORIDE
     Dosage: 500 MG, 2X/DAY (EVERY 12 HOURS)
     Dates: start: 20170503, end: 20170624
  2. NEXIUM [Concomitant]
     Active Substance: ESOMEPRAZOLE MAGNESIUM
     Dosage: 40 MG, ONCE (UNSPECIFIED FREQUENCY)
     Dates: start: 20170504, end: 20170707
  3. ANSENTRON [Concomitant]
     Dosage: 4 MG, 3X/DAY (EVERY 8 HOURS)
     Dates: start: 20170505, end: 20170629
  4. LASIX [Concomitant]
     Active Substance: FUROSEMIDE
     Dosage: 20 MG, ONCE (UNSPECIFIED FREQUENCY)
     Dates: start: 20170507, end: 20170626
  5. MERONEM [Concomitant]
     Active Substance: MEROPENEM
     Dosage: 1 G, 3X/DAY (EVERY 8 HOURS)
     Dates: start: 20170506, end: 20170615
  6. VALTREX [Concomitant]
     Active Substance: VALACYCLOVIR HYDROCHLORIDE
     Dosage: 500 MG, ONCE (UNSPECIFIED FREQUENCY)
     Dates: start: 20170503, end: 20170528
  7. ARACYTIN CS [Suspect]
     Active Substance: CYTARABINE
     Indication: ACUTE MYELOMONOCYTIC LEUKAEMIA
     Dosage: 335 MG, 1X/DAY
     Route: 042
     Dates: start: 20170703, end: 20170709
  8. CLEXANE [Concomitant]
     Active Substance: ENOXAPARIN SODIUM
     Dosage: 40 MG, ONCE (UNSPECIFIED FREQUENCY)
     Dates: start: 20170505, end: 20170626
  9. TYLENOL [Concomitant]
     Active Substance: ACETAMINOPHEN
     Dosage: 750 MG, 4X/DAY (EVERY 6 HOURS)
     Dates: start: 20170503, end: 20170707

REACTIONS (4)
  - Hyperthermia [Recovering/Resolving]
  - Neutropenia [Recovering/Resolving]
  - Thrombocytopenia [Recovering/Resolving]
  - Anaemia [Recovering/Resolving]

NARRATIVE: CASE EVENT DATE: 20170711
